FAERS Safety Report 9627467 (Version 2)
Quarter: 2013Q4

REPORT INFORMATION
  Report Type: Not Available
  Country: US (occurrence: US)
  Receive Date: 20131016
  Receipt Date: 20131016
  Transmission Date: 20140711
  Serious: No
  Sender: FDA-Public Use
  Company Number: US-LUNDBECK-DKLU1088489

PATIENT
  Sex: Male

DRUGS (3)
  1. SABRIL (TABLET) [Suspect]
     Indication: COMPLEX PARTIAL SEIZURES
     Dates: start: 20121205
  2. SABRIL (TABLET) [Suspect]
     Dates: start: 20121226
  3. SABRIL (TABLET) [Suspect]

REACTIONS (2)
  - Sexual activity increased [Unknown]
  - Fatigue [Unknown]
